FAERS Safety Report 6796009-3 (Version None)
Quarter: 2010Q2

REPORT INFORMATION
  Report Type: 
  Country: None (occurrence: None)
  Receive Date: 20100625
  Receipt Date: 20100615
  Transmission Date: 20101027
  Serious: Yes (Hospitalization)
  Sender: FDA-Public Use
  Company Number: IE-SHIRE-SPV1-2010-01109

PATIENT

DRUGS (3)
  1. IDURSULFASE [Suspect]
     Indication: MUCOPOLYSACCHARIDOSIS II
     Dosage: 6 MG, 1X/WEEK
     Route: 041
     Dates: start: 20091112
  2. ACETAMINOPHEN [Concomitant]
     Indication: PAIN
     Dates: start: 20091112
  3. CHLORPHENAMINE [Concomitant]
     Indication: PREMEDICATION
     Dosage: 1 MG, 1X/WEEK
     Route: 048

REACTIONS (1)
  - HOSPITALISATION [None]
